FAERS Safety Report 23617878 (Version 1)
Quarter: 2024Q1

REPORT INFORMATION
  Report Type: Spontaneous
  Country: CA (occurrence: CA)
  Receive Date: 20240311
  Receipt Date: 20240311
  Transmission Date: 20240410
  Serious: Yes (Death)
  Sender: FDA-Public Use
  Company Number: CA-TEVA-VS-3165260

PATIENT
  Age: 69 Year
  Sex: Female

DRUGS (2)
  1. METHOTREXATE [Suspect]
     Active Substance: METHOTREXATE
     Indication: Rheumatoid arthritis
     Dosage: DOSE FORM: NOT SPECIFIED
     Route: 065
  2. HUMIRA [Concomitant]
     Active Substance: ADALIMUMAB
     Dosage: DOSE FORM: NOT SPECIFIED
     Route: 065

REACTIONS (9)
  - Colitis [Fatal]
  - Delirium [Fatal]
  - Pancytopenia [Fatal]
  - Pneumonia [Fatal]
  - Pyrexia [Fatal]
  - Septic shock [Fatal]
  - Skin ulcer [Fatal]
  - Skin wound [Fatal]
  - Stomatitis [Fatal]
